FAERS Safety Report 6861315-0 (Version None)
Quarter: 2010Q3

REPORT INFORMATION
  Report Type: 
  Country: None (occurrence: None)
  Receive Date: 20100715
  Receipt Date: 20100702
  Transmission Date: 20110219
  Serious: Yes (Hospitalization)
  Sender: FDA-Public Use
  Company Number: FR-002397

PATIENT
  Sex: Male

DRUGS (2)
  1. MINIRIN [Suspect]
     Indication: PRODUCT USED FOR UNKNOWN INDICATION
     Dates: start: 20100601
  2. RISPERDAL [Suspect]
     Indication: PRODUCT USED FOR UNKNOWN INDICATION
     Dosage: (2 MG, DOSAGE INCREASED PROGRESSIVELY ORAL)
     Route: 048
     Dates: start: 20100501

REACTIONS (8)
  - ABDOMINAL PAIN [None]
  - AGITATION [None]
  - DRUG INTERACTION [None]
  - DYSTONIA [None]
  - FALL [None]
  - HYPERTONIA [None]
  - MUSCLE SPASMS [None]
  - TORTICOLLIS [None]
